FAERS Safety Report 7636719-9 (Version None)
Quarter: 2011Q3

REPORT INFORMATION
  Report Type: 
  Country: None (occurrence: None)
  Receive Date: 20110726
  Receipt Date: 20110725
  Transmission Date: 20111222
  Serious: Yes (Hospitalization)
  Sender: FDA-Public Use
  Company Number: BE-BRISTOL-MYERS SQUIBB COMPANY-15921943

PATIENT
  Age: 53 Year
  Sex: Male
  Weight: 75 kg

DRUGS (17)
  1. PEMETREXED DISODIUM [Suspect]
     Indication: NON-SMALL CELL LUNG CANCER
     Dosage: VIAL. EVERY 21 DAYS.
     Route: 042
     Dates: start: 20110708, end: 20110708
  2. FOLIC ACID [Concomitant]
     Dates: start: 20110627
  3. DEXAMETHASONE [Concomitant]
     Dates: start: 20110706, end: 20110709
  4. DICLOFENAC SODIUM [Concomitant]
     Dates: start: 20110301, end: 20110710
  5. APREPITANT [Concomitant]
     Dates: start: 20110708, end: 20110710
  6. FUROSEMIDE [Concomitant]
     Dates: start: 20110708, end: 20110708
  7. BUPRENORPHINE [Concomitant]
     Dates: start: 20110629
  8. MIRTAZAPINE [Concomitant]
     Dates: start: 20070101
  9. VITAMIN B-12 [Concomitant]
     Dates: start: 20110627, end: 20110627
  10. ACETAMINOPHEN [Concomitant]
     Dates: start: 20110301
  11. MANNITOL [Concomitant]
     Dates: start: 20110708, end: 20110708
  12. GLUTATHIONE [Concomitant]
     Dates: start: 20110708, end: 20110708
  13. CISPLATIN [Suspect]
     Indication: NON-SMALL CELL LUNG CANCER
     Dosage: EVERY 21 DAYS.
     Route: 042
     Dates: start: 20110708, end: 20110708
  14. TRAZODONE HCL [Concomitant]
     Dates: start: 20110101
  15. TROPISETRON [Concomitant]
     Dates: start: 20110708, end: 20110708
  16. CLORAZEPATE DIPOTASSIUM [Concomitant]
     Dates: start: 20110101
  17. ENOXAPARIN [Concomitant]
     Dates: start: 20110708, end: 20110711

REACTIONS (1)
  - UPPER GASTROINTESTINAL HAEMORRHAGE [None]
